FAERS Safety Report 7527319-X (Version None)
Quarter: 2011Q2

REPORT INFORMATION
  Report Type: 
  Country: None (occurrence: None)
  Receive Date: 20110602
  Receipt Date: 20110520
  Transmission Date: 20111010
  Serious: Yes (Hospitalization, Other)
  Sender: FDA-Public Use
  Company Number: 2011P1006714

PATIENT
  Age: 56 Year
  Sex: Male

DRUGS (3)
  1. SULPHADIAZINE [Concomitant]
  2. PYRIMETHAMINE TAB [Suspect]
     Indication: TOXOPLASMOSIS
  3. LEUCOVORIN CALCIUM [Concomitant]

REACTIONS (6)
  - NEPHROPATHY [None]
  - NEPHRITIS [None]
  - CEREBRAL TOXOPLASMOSIS [None]
  - DRUG ERUPTION [None]
  - TOXICITY TO VARIOUS AGENTS [None]
  - CONVULSION [None]
